FAERS Safety Report 4904453-1 (Version None)
Quarter: 2006Q1

REPORT INFORMATION
  Report Type: 
  Country: None (occurrence: None)
  Receive Date: 20060208
  Receipt Date: 20050901
  Transmission Date: 20060701
  Serious: No
  Sender: FDA-Public Use
  Company Number: US-GLAXOSMITHKLINE-A0573363A

PATIENT
  Age: 86 Year
  Sex: Female

DRUGS (7)
  1. PAXIL [Suspect]
     Indication: DEPRESSION
     Dosage: 20MG PER DAY
     Route: 048
  2. LANOXIN [Concomitant]
  3. PLAVIX [Concomitant]
  4. LASIX [Concomitant]
  5. DARVOCET [Concomitant]
  6. UNIVASC [Concomitant]
  7. CALCIUM GLUCONATE [Concomitant]

REACTIONS (2)
  - CRYING [None]
  - DEPRESSION [None]
